FAERS Safety Report 7190508-0 (Version None)
Quarter: 2010Q4

REPORT INFORMATION
  Report Type: 
  Country: None (occurrence: None)
  Receive Date: 20101223
  Receipt Date: 20101220
  Transmission Date: 20110411
  Serious: Yes (Hospitalization)
  Sender: FDA-Public Use
  Company Number: KR-ELI_LILLY_AND_COMPANY-KR201009007381

PATIENT
  Sex: Female
  Weight: 56 kg

DRUGS (7)
  1. GEMCITABINE HCL [Suspect]
     Indication: BREAST CANCER
     Dosage: 1875 MG, OTHER
     Route: 042
     Dates: start: 20100831
  2. PACLITAXEL [Suspect]
     Indication: BREAST CANCER
     Dosage: 269 MG, OTHER
     Route: 042
     Dates: start: 20100831
  3. HYDROCHLOROTHIAZIDE [Concomitant]
     Indication: HYPERTENSION
     Dosage: 12.5 MG, UNK
     Dates: start: 20100825, end: 20100921
  4. NIFEDIPINE [Concomitant]
     Indication: HYPERTENSION
     Dosage: 30 MG, UNK
     Dates: start: 20100825, end: 20100921
  5. ZOLPIDEM [Concomitant]
     Indication: INSOMNIA
     Dosage: 5 MG, UNK
     Dates: start: 20100825, end: 20100921
  6. LEVODROPROPIZINE [Concomitant]
     Indication: BRONCHIECTASIS
     Dosage: 10 ML, UNK
     Dates: start: 20100820, end: 20100921
  7. ACEBROFYLLINE [Concomitant]
     Indication: BRONCHIECTASIS
     Dosage: 100 MG, UNK
     Dates: start: 20100820, end: 20100921

REACTIONS (1)
  - PNEUMONIA [None]
